FAERS Safety Report 15697509 (Version 1)
Quarter: 2018Q4

REPORT INFORMATION
  Report Type: Report from Study
  Country: None (occurrence: AU)
  Receive Date: 20181207
  Receipt Date: 20181207
  Transmission Date: 20190205
  Serious: Yes (Other)
  Sender: FDA-Public Use
  Company Number: AU-ABBVIE-18K-008-2574904-00

PATIENT
  Age: 75 Year
  Sex: Female

DRUGS (3)
  1. PREDNISONE. [Concomitant]
     Active Substance: PREDNISONE
     Dosage: 3.5 TABLETS A WEEK
  2. PREDNISONE. [Concomitant]
     Active Substance: PREDNISONE
     Indication: RHEUMATOID ARTHRITIS
     Dosage: 7 TABLETS A WEEK
  3. HUMIRA [Suspect]
     Active Substance: ADALIMUMAB
     Indication: RHEUMATOID ARTHRITIS
     Route: 058
     Dates: start: 20170727

REACTIONS (9)
  - Feeling abnormal [Recovered/Resolved]
  - Injection site haemorrhage [Recovered/Resolved]
  - Abdominal pain upper [Not Recovered/Not Resolved]
  - Emotional disorder [Unknown]
  - Rheumatoid arthritis [Not Recovered/Not Resolved]
  - Injection site bruising [Recovered/Resolved]
  - Injection site reaction [Recovered/Resolved]
  - Device issue [Unknown]
  - Musculoskeletal disorder [Unknown]

NARRATIVE: CASE EVENT DATE: 20181130
